FAERS Safety Report 7259608-0 (Version None)
Quarter: 2011Q1

REPORT INFORMATION
  Report Type: 
  Country: None (occurrence: None)
  Receive Date: 20110130
  Receipt Date: 20100908
  Transmission Date: 20110831
  Serious: No
  Sender: FDA-Public Use
  Company Number: US-ABBOTT-10P-163-0624165-00

PATIENT
  Sex: Female
  Weight: 86.26 kg

DRUGS (6)
  1. SYNTHROID [Concomitant]
     Indication: HYPOTHYROIDISM
  2. LEXAPRO [Concomitant]
     Indication: DEPRESSION
  3. HUMIRA [Suspect]
  4. FUROSEMIDE [Concomitant]
     Indication: PRODUCT USED FOR UNKNOWN INDICATION
     Dosage: IN AM UNKNOWN WATER PILL
     Route: 048
  5. HUMIRA [Suspect]
     Indication: CROHN'S DISEASE
     Dates: start: 20090630
  6. POTASSIUM [Concomitant]
     Indication: BLOOD POTASSIUM DECREASED

REACTIONS (9)
  - INJECTION SITE SWELLING [None]
  - PRURITUS [None]
  - INJECTION SITE PRURITUS [None]
  - OEDEMA PERIPHERAL [None]
  - INJECTION SITE ERYTHEMA [None]
  - INJECTION SITE MACULE [None]
  - INJECTION SITE WARMTH [None]
  - DRUG INEFFECTIVE [None]
  - ERYTHEMA [None]
